FAERS Safety Report 4491615-3 (Version None)
Quarter: 2004Q4

REPORT INFORMATION
  Report Type: 
  Country: None (occurrence: None)
  Receive Date: 20041101
  Receipt Date: 20041021
  Transmission Date: 20050328
  Serious: Yes (Hospitalization)
  Sender: FDA-Public Use
  Company Number: 2004081015

PATIENT
  Age: 60 Year
  Sex: Male

DRUGS (3)
  1. LIPITOR [Suspect]
     Indication: HYPERCHOLESTEROLAEMIA
     Dosage: 10 MG (1 D), ORAL
     Route: 048
     Dates: end: 20041007
  2. ASPIRIN [Concomitant]
  3. IRSOGLADINE MALEATE (IRSOGLADINE MALEATE) [Concomitant]

REACTIONS (1)
  - PLATELET COUNT DECREASED [None]
